FAERS Safety Report 6440388-3 (Version None)
Quarter: 2009Q4

REPORT INFORMATION
  Report Type: 
  Country: None (occurrence: None)
  Receive Date: 20091113
  Receipt Date: 20091105
  Transmission Date: 20100525
  Serious: Yes (Hospitalization, Other)
  Sender: FDA-Public Use
  Company Number: PHHO2009GB13809

PATIENT
  Sex: Male
  Weight: 82 kg

DRUGS (4)
  1. EXELON [Suspect]
     Indication: DEMENTIA
     Dosage: 3 MG, BID
     Route: 048
  2. EXELON [Suspect]
     Dosage: 4.5 MG, BID
     Route: 048
     Dates: start: 20091020
  3. EXELON [Suspect]
     Dosage: 3 MG, BID
     Route: 048
  4. SINEMET CR [Concomitant]

REACTIONS (3)
  - FALL [None]
  - SCAPULA FRACTURE [None]
  - TREMOR [None]
